FAERS Safety Report 4416192-4 (Version None)
Quarter: 2004Q3

REPORT INFORMATION
  Report Type: 
  Country: None (occurrence: None)
  Receive Date: 20040805
  Receipt Date: 20040723
  Transmission Date: 20050211
  Serious: Yes (Life-Threatening, Hospitalization)
  Sender: FDA-Public Use
  Company Number: AU-AMGEN-US085307

PATIENT
  Sex: Female
  Weight: 35 kg

DRUGS (6)
  1. ENBREL [Suspect]
     Indication: RHEUMATOID ARTHRITIS
     Route: 058
     Dates: start: 20031201, end: 20040501
  2. ZOLEDRONIC ACID [Concomitant]
     Route: 042
     Dates: start: 20040223
  3. CALCIUM CARBONATE [Concomitant]
     Route: 048
     Dates: start: 20040322
  4. ERGOCALCIFEROL [Concomitant]
     Route: 048
     Dates: start: 20040322
  5. TRAMADOL HCL [Concomitant]
  6. DEPO-MEDROL [Concomitant]

REACTIONS (1)
  - POLYMYOSITIS [None]
